FAERS Safety Report 9401526 (Version 1)
Quarter: 2013Q3

REPORT INFORMATION
  Report Type: Report from Study
  Country: ZA (occurrence: ZA)
  Receive Date: 20130716
  Receipt Date: 20130716
  Transmission Date: 20140515
  Serious: Yes (Death)
  Sender: FDA-Public Use
  Company Number: ZA-ROCHE-1248924

PATIENT
  Sex: Female

DRUGS (5)
  1. MIRCERA [Suspect]
     Indication: NEPHROGENIC ANAEMIA
     Route: 065
     Dates: start: 20091007
  2. MIRCERA [Suspect]
     Dosage: FOR TWO MONTHS
     Route: 065
  3. MIRCERA [Suspect]
     Dosage: FOR ONE MONTH
     Route: 065
  4. RECORMON [Suspect]
     Indication: NEPHROGENIC ANAEMIA
     Route: 058
     Dates: start: 201106
  5. RECORMON [Suspect]
     Route: 058
     Dates: start: 20120709

REACTIONS (1)
  - Death [Fatal]
